FAERS Safety Report 24135840 (Version 1)
Quarter: 2024Q3

REPORT INFORMATION
  Report Type: Spontaneous
  Country: US (occurrence: None)
  Receive Date: 20240724
  Receipt Date: 20240724
  Transmission Date: 20241016
  Serious: Yes (Hospitalization)
  Sender: Public
  Company Number: None

PATIENT
  Age: 73 Year
  Sex: Male

DRUGS (1)
  1. ACTIMMUNE [Suspect]
     Active Substance: INTERFERON GAMMA-1B
     Indication: Cutaneous T-cell lymphoma
     Dosage: 0.3ML THREE TIMES WEEKLY

REACTIONS (7)
  - Chills [None]
  - Nervousness [None]
  - Gait inability [None]
  - Grip strength decreased [None]
  - Pyrexia [None]
  - Bacterial infection [None]
  - Escherichia test positive [None]
